FAERS Safety Report 8602122-8 (Version None)
Quarter: 2012Q3

REPORT INFORMATION
  Report Type: 
  Country: None (occurrence: None)
  Receive Date: 20120817
  Receipt Date: 20120808
  Transmission Date: 20120928
  Serious: Yes (Hospitalization, Other)
  Sender: FDA-Public Use
  Company Number: US-NOVOPROD-356305

PATIENT
  Age: 71 Year
  Sex: Male
  Weight: 97.5 kg

DRUGS (13)
  1. LANTUS [Suspect]
     Dosage: 40 U, QD
     Route: 058
     Dates: start: 20120101
  2. SIMVASTATIN [Concomitant]
     Indication: PRODUCT USED FOR UNKNOWN INDICATION
     Dosage: UNK
  3. FISH OIL [Concomitant]
     Indication: PRODUCT USED FOR UNKNOWN INDICATION
     Dosage: UNK
  4. BENAZEPRIL HYDROCHLORIDE [Concomitant]
     Indication: PRODUCT USED FOR UNKNOWN INDICATION
     Dosage: UNK
  5. CARVEDILOL [Concomitant]
     Indication: PRODUCT USED FOR UNKNOWN INDICATION
     Dosage: UNK
  6. LOSARTAN POTASSIUM AND HYDROCHLOROTHIAZIDE [Concomitant]
     Indication: PRODUCT USED FOR UNKNOWN INDICATION
     Dosage: UNK
  7. ASPIRIN [Concomitant]
     Indication: PRODUCT USED FOR UNKNOWN INDICATION
     Dosage: UNK
  8. CENTRUM SILVER                     /01292501/ [Concomitant]
     Indication: PRODUCT USED FOR UNKNOWN INDICATION
     Dosage: UNK
  9. LANTUS [Suspect]
     Indication: DIABETES MELLITUS
     Dosage: 50 UNITS QD IN MORNING
     Route: 058
     Dates: start: 20050601, end: 20120101
  10. MINOXIDIL [Suspect]
     Indication: PRODUCT USED FOR UNKNOWN INDICATION
     Dosage: 15 MG, UNK
     Dates: end: 20120716
  11. NOVOLOG [Suspect]
     Indication: DIABETES MELLITUS
     Dosage: 1 U BEFORE MEALS
     Route: 058
  12. TRICOR [Concomitant]
     Indication: PRODUCT USED FOR UNKNOWN INDICATION
     Dosage: UNK
  13. AMLODIPINE BESYLATE [Concomitant]
     Indication: BLOOD PRESSURE INCREASED
     Dosage: 2.5 MG, UNK

REACTIONS (6)
  - ROAD TRAFFIC ACCIDENT [None]
  - LOSS OF CONSCIOUSNESS [None]
  - LACERATION [None]
  - WEIGHT DECREASED [None]
  - BLOOD GLUCOSE DECREASED [None]
  - BLOOD PRESSURE DECREASED [None]
